FAERS Safety Report 4892365-1 (Version None)
Quarter: 2006Q1

REPORT INFORMATION
  Report Type: 
  Country: None (occurrence: None)
  Receive Date: 20060125
  Receipt Date: 20060125
  Transmission Date: 20060701
  Serious: Yes (Hospitalization)
  Sender: FDA-Public Use
  Company Number: None

PATIENT
  Age: 85 Year
  Sex: Male

DRUGS (1)
  1. CITALOPRAM HYDROBROMIDE [Suspect]
     Dates: start: 20050928, end: 20051007

REACTIONS (6)
  - ABDOMINAL PAIN [None]
  - DIFFICULTY IN WALKING [None]
  - NAUSEA [None]
  - ORAL INTAKE REDUCED [None]
  - STOMACH DISCOMFORT [None]
  - VOMITING [None]
